FAERS Safety Report 16745760 (Version 1)
Quarter: 2019Q4

REPORT INFORMATION
  Report Type: Spontaneous
  Country: US (occurrence: US)
  Receive Date: 20190827
  Receipt Date: 20190827
  Transmission Date: 20200122
  Serious: No
  Sender: FDA-Public Use
  Company Number: None

PATIENT
  Age: 23 Year
  Sex: Female
  Weight: 73.8 kg

DRUGS (6)
  1. ZYRTEC [Concomitant]
     Active Substance: CETIRIZINE HYDROCHLORIDE
  2. ORTHO-TRI-CYCLEN (GENERIC) [Suspect]
     Active Substance: ETHINYL ESTRADIOL\NORGESTIMATE
  3. HYDROXYZINE [Concomitant]
     Active Substance: HYDROXYZINE HYDROCHLORIDE
  4. ALIVE VITAMINS FOR WOMEN [Concomitant]
  5. TRI-NESSA (GENERIC) [Suspect]
     Active Substance: ETHINYL ESTRADIOL\NORGESTIMATE
     Indication: CONTRACEPTION
     Dosage: ?          QUANTITY:1 CAPSULE(S);?
     Route: 048
     Dates: start: 20180801, end: 20190818
  6. CRANBERRY PILL [Concomitant]
     Active Substance: CRANBERRY

REACTIONS (6)
  - Libido decreased [None]
  - Thrombosis [None]
  - Urticaria [None]
  - Depression [None]
  - Weight increased [None]
  - Astigmatism [None]

NARRATIVE: CASE EVENT DATE: 20190826
